FAERS Safety Report 13270340 (Version 4)
Quarter: 2017Q4

REPORT INFORMATION
  Report Type: Spontaneous
  Country: US (occurrence: US)
  Receive Date: 20170224
  Receipt Date: 20171004
  Transmission Date: 20180320
  Serious: No
  Sender: FDA-Public Use
  Company Number: US-GLAXOSMITHKLINE-US2017026237

PATIENT
  Age: 50 Year
  Sex: Female

DRUGS (4)
  1. NICODERM CQ [Suspect]
     Active Substance: NICOTINE
     Indication: SMOKING CESSATION THERAPY
     Dosage: 21 MG, UNK
     Dates: start: 201610, end: 20170105
  2. NICODERM CQ [Suspect]
     Active Substance: NICOTINE
     Dosage: 21 MG, UNK
  3. IMIQUIMOD CREAM [Suspect]
     Active Substance: IMIQUIMOD
     Indication: PRODUCT USED FOR UNKNOWN INDICATION
     Dosage: UNK
  4. KEFLEX [Concomitant]
     Active Substance: CEPHALEXIN
     Indication: PRODUCT USED FOR UNKNOWN INDICATION
     Dosage: UNK

REACTIONS (5)
  - Application site ulcer [Not Recovered/Not Resolved]
  - Application site wound [Unknown]
  - Application site scab [Not Recovered/Not Resolved]
  - Application site vesicles [Unknown]
  - Application site scar [Not Recovered/Not Resolved]

NARRATIVE: CASE EVENT DATE: 20170128
